FAERS Safety Report 4929366-0 (Version None)
Quarter: 2006Q1

REPORT INFORMATION
  Report Type: 
  Country: None (occurrence: None)
  Receive Date: 20060224
  Receipt Date: 20060213
  Transmission Date: 20060701
  Serious: Yes (Hospitalization)
  Sender: FDA-Public Use
  Company Number: 2006022313

PATIENT
  Age: 86 Year
  Sex: Male
  Weight: 69 kg

DRUGS (5)
  1. XANAX [Suspect]
     Indication: ILL-DEFINED DISORDER
     Dosage: 0.25 MG (0.25 MG, 1 IN 1 D), ORAL
     Route: 048
  2. ACETAMINOPHEN W/ PROPOXYPHENE HCL [Suspect]
     Indication: ILL-DEFINED DISORDER
     Dosage: 3 IN 1 D, ORAL
     Route: 048
     Dates: start: 20051130, end: 20051220
  3. IMOVANE (ZOPICLONE) [Suspect]
     Indication: ILL-DEFINED DISORDER
     Dosage: 1 IN 1 D, ORAL
     Route: 048
     Dates: start: 20051130
  4. FUROSEMIDE [Suspect]
     Indication: HYPERTENSION
     Dosage: 1 IN 1 D, ORAL
     Route: 048
     Dates: end: 20051226
  5. PREDNISONE [Suspect]
     Indication: ILL-DEFINED DISORDER
     Dosage: 20 MG (20 MG, 1 IN 1 D), ORAL
     Route: 048

REACTIONS (2)
  - HYPOGLYCAEMIA [None]
  - MALAISE [None]
